FAERS Safety Report 8858951 (Version 3)
Quarter: 2012Q4

REPORT INFORMATION
  Report Type: 
  Country: US (occurrence: US)
  Receive Date: 20121024
  Receipt Date: 20121114
  Transmission Date: 20130627
  Serious: Yes (Hospitalization, Other)
  Sender: FDA-Public Use
  Company Number: US-ACTELION-A-US2012-72941

PATIENT
  Age: 63 Year
  Sex: Female

DRUGS (4)
  1. VENTAVIS [Suspect]
     Indication: PULMONARY ARTERIAL HYPERTENSION
     Dosage: UNK
     Route: 055
  2. TRACLEER [Suspect]
     Indication: PULMONARY ARTERIAL HYPERTENSION
     Dosage: UNK
     Route: 048
     Dates: start: 20030708
  3. COUMADIN [Concomitant]
  4. SILDENAFIL [Concomitant]

REACTIONS (12)
  - Transient ischaemic attack [Unknown]
  - Atrial fibrillation [Unknown]
  - Acute coronary syndrome [Unknown]
  - Dyspnoea [Unknown]
  - Pulmonary arterial pressure increased [Unknown]
  - Hypoaesthesia [Unknown]
  - Fall [Unknown]
  - Paraesthesia [Unknown]
  - Chest discomfort [Unknown]
  - Neck pain [Unknown]
  - Erythema [Unknown]
  - Feeling hot [Unknown]
